FAERS Safety Report 4608127-6 (Version None)
Quarter: 2005Q1

REPORT INFORMATION
  Report Type: 
  Country: None (occurrence: None)
  Receive Date: 20050314
  Receipt Date: 20041028
  Transmission Date: 20050727
  Serious: Yes (Hospitalization, Disabling)
  Sender: FDA-Public Use
  Company Number: DE-MERCK-0411DEU00015

PATIENT
  Age: 50 Year
  Sex: Female

DRUGS (3)
  1. VIOXX [Suspect]
     Indication: OSTEOARTHRITIS
     Route: 048
     Dates: start: 20011201, end: 20030101
  2. VIOXX [Suspect]
     Route: 048
     Dates: start: 20031001, end: 20041001
  3. IODINE [Concomitant]
     Route: 065

REACTIONS (9)
  - BLOOD PRESSURE INCREASED [None]
  - CERVICAL SPINAL STENOSIS [None]
  - DEAFNESS UNILATERAL [None]
  - DEMYELINATION [None]
  - INNER EAR DISORDER [None]
  - OSTEOCHONDROSIS [None]
  - TREATMENT NONCOMPLIANCE [None]
  - VERTIGO [None]
  - VESTIBULAR DISORDER [None]
